FAERS Safety Report 8694940 (Version 7)
Quarter: 2013Q4

REPORT INFORMATION
  Report Type: Spontaneous
  Country: US (occurrence: US)
  Receive Date: 20120731
  Receipt Date: 20131126
  Transmission Date: 20140711
  Serious: Yes (Death, Hospitalization, Other)
  Sender: FDA-Public Use
  Company Number: US-009507513-1207USA007316

PATIENT
  Sex: Female
  Weight: 64.4 kg

DRUGS (6)
  1. FOSAMAX [Suspect]
     Indication: OSTEOPOROSIS
     Dosage: 70 MG, QW
     Route: 048
     Dates: start: 200304, end: 200801
  2. FOSAMAX [Suspect]
     Indication: RHEUMATOID ARTHRITIS
     Dosage: UNK
     Route: 048
  3. FOSAMAX [Suspect]
     Indication: OSTEOPENIA
  4. METHOTREXATE [Concomitant]
     Indication: RHEUMATOID ARTHRITIS
     Dosage: UNK, QW
     Dates: start: 2003
  5. CALCIUM (UNSPECIFIED) [Concomitant]
     Indication: OSTEOPOROSIS
     Dosage: 1500 MG, QD
  6. VITAMIN D (UNSPECIFIED) [Concomitant]
     Indication: OSTEOPOROSIS
     Dosage: 400-800 IU, QD

REACTIONS (50)
  - Femur fracture [Recovering/Resolving]
  - Internal fixation of fracture [Unknown]
  - Death [Fatal]
  - Gallbladder disorder [Unknown]
  - Renal failure chronic [Not Recovered/Not Resolved]
  - Cystitis [Unknown]
  - Open reduction of fracture [Unknown]
  - Pancytopenia [Unknown]
  - Anaemia of chronic disease [Unknown]
  - Toxicity to various agents [Unknown]
  - Stomatitis [Unknown]
  - Hypertension [Unknown]
  - Renal failure acute [Unknown]
  - Skin ulcer [Not Recovered/Not Resolved]
  - Haemorrhagic anaemia [Not Recovered/Not Resolved]
  - Nausea [Unknown]
  - Vomiting [Unknown]
  - Fall [Unknown]
  - Low turnover osteopathy [Unknown]
  - Cellulitis staphylococcal [Not Recovered/Not Resolved]
  - Osteomyelitis chronic [Not Recovered/Not Resolved]
  - Staphylococcal infection [Not Recovered/Not Resolved]
  - Ulna fracture [Unknown]
  - Cellulitis [Unknown]
  - Escherichia urinary tract infection [Unknown]
  - Compression fracture [Not Recovered/Not Resolved]
  - Cardiac murmur [Unknown]
  - Immunosuppression [Not Recovered/Not Resolved]
  - Dermatitis atopic [Unknown]
  - Osteoarthritis [Unknown]
  - Cataract operation [Unknown]
  - Rotator cuff syndrome [Unknown]
  - Cataract [Unknown]
  - Hypertonic bladder [Unknown]
  - Lumbar spinal stenosis [Unknown]
  - Spondylolisthesis [Unknown]
  - Intervertebral disc degeneration [Unknown]
  - Vertebral foraminal stenosis [Unknown]
  - Arthropathy [Unknown]
  - Spinal fracture [Unknown]
  - Spinal compression fracture [Unknown]
  - Spinal compression fracture [Unknown]
  - Fracture nonunion [Not Recovered/Not Resolved]
  - Fall [Unknown]
  - Asthenia [Unknown]
  - Off label use [Unknown]
  - Nausea [Unknown]
  - Vomiting [Unknown]
  - Retching [Unknown]
  - Rash [Unknown]
